FAERS Safety Report 4430258-4 (Version None)
Quarter: 2004Q3

REPORT INFORMATION
  Report Type: 
  Country: None (occurrence: None)
  Receive Date: 20040820
  Receipt Date: 20040810
  Transmission Date: 20050211
  Serious: Yes (Life-Threatening, Hospitalization)
  Sender: FDA-Public Use
  Company Number: FR-GLAXOSMITHKLINE-B0341983A

PATIENT
  Age: 36 Year
  Sex: Female
  Weight: 51 kg

DRUGS (5)
  1. IMUREL [Suspect]
     Indication: CROHN'S DISEASE
     Dosage: 2TAB PER DAY
     Route: 048
     Dates: start: 20001215, end: 20030915
  2. PREDNISONE TAB [Suspect]
     Dosage: 8MG PER DAY
     Route: 048
  3. SULFASALAZINE [Suspect]
     Indication: CROHN'S DISEASE
     Dosage: 2TAB THREE TIMES PER DAY
     Route: 048
     Dates: start: 20030515
  4. PROPRANOLOL [Suspect]
     Dosage: 10MG TWICE PER DAY
     Route: 048
  5. RANITIDINE [Suspect]
     Dosage: 150MG TWICE PER DAY
     Route: 048
     Dates: end: 20040612

REACTIONS (6)
  - ACUTE MYELOID LEUKAEMIA [None]
  - ARTHRALGIA [None]
  - ASTHENIA [None]
  - HAEMOGLOBIN DECREASED [None]
  - MACROCYTOSIS [None]
  - SPINAL MYELOGRAM ABNORMAL [None]
